FAERS Safety Report 9874200 (Version 2)
Quarter: 2014Q1

REPORT INFORMATION
  Report Type: Other
  Country: US (occurrence: US)
  Receive Date: 20140206
  Receipt Date: 20140206
  Transmission Date: 20141002
  Serious: Yes (Hospitalization)
  Sender: FDA-Public Use
  Company Number: US-ACORDA-ACO_34202_2013

PATIENT
  Age: 61 Year
  Sex: Female

DRUGS (2)
  1. AMPYRA [Suspect]
     Indication: MULTIPLE SCLEROSIS
     Dosage: 10 MG, BID
     Route: 048
     Dates: start: 20130131, end: 201302
  2. COZAAR [Concomitant]
     Indication: HYPERTENSION
     Dosage: 25 MG, EVERY AM
     Route: 048

REACTIONS (2)
  - Anaphylactic reaction [Recovered/Resolved]
  - Anxiety [Recovered/Resolved]
